FAERS Safety Report 10215678 (Version 1)
Quarter: 2014Q2

REPORT INFORMATION
  Report Type: Spontaneous
  Country: US (occurrence: US)
  Receive Date: 20140604
  Receipt Date: 20140604
  Transmission Date: 20141212
  Serious: No
  Sender: FDA-Public Use
  Company Number: US-SHIRE-US201402615

PATIENT
  Sex: Female

DRUGS (1)
  1. PENTASA [Suspect]
     Indication: CROHN^S DISEASE
     Dosage: UNK, UNKNOWN
     Route: 048

REACTIONS (2)
  - Dyspnoea [Unknown]
  - Off label use [Unknown]
